FAERS Safety Report 7283125-5 (Version None)
Quarter: 2011Q1

REPORT INFORMATION
  Report Type: 
  Country: None (occurrence: None)
  Receive Date: 20110209
  Receipt Date: 20101123
  Transmission Date: 20110831
  Serious: No
  Sender: FDA-Public Use
  Company Number: A0887377A

PATIENT
  Age: 65 Year
  Sex: Female

DRUGS (3)
  1. HYDROCODONE BITARTRATE [Concomitant]
  2. PAXIL CR [Suspect]
     Indication: STRESS
     Dosage: 37.5MG PER DAY
     Route: 048
     Dates: start: 20011001, end: 20101014
  3. TAMBOCOR [Concomitant]

REACTIONS (7)
  - SOMNOLENCE [None]
  - DIZZINESS [None]
  - IRRITABILITY [None]
  - MENTAL IMPAIRMENT [None]
  - NAUSEA [None]
  - TREMOR [None]
  - EMOTIONAL DISORDER [None]
